FAERS Safety Report 9514156 (Version 2)
Quarter: 2013Q3

REPORT INFORMATION
  Report Type: Report from Study
  Country: CA (occurrence: CA)
  Receive Date: 20130910
  Receipt Date: 20130910
  Transmission Date: 20140515
  Serious: Yes (Other)
  Sender: FDA-Public Use
  Company Number: CA-ABBOTT-13P-028-1141324-00

PATIENT
  Sex: Female
  Weight: 65.83 kg

DRUGS (2)
  1. HUMIRA [Suspect]
     Indication: CROHN^S DISEASE
     Route: 058
     Dates: start: 20111212
  2. PREDNISONE [Concomitant]
     Dosage: TAPERING OFF FROM AROUND JUN 2011 TO AUG (UNK.YR)

REACTIONS (2)
  - Intestinal fibrosis [Recovered/Resolved]
  - Intestinal resection [Recovered/Resolved]
